FAERS Safety Report 5210535-X (Version None)
Quarter: 2007Q1

REPORT INFORMATION
  Report Type: 
  Country: None (occurrence: None)
  Receive Date: 20070117
  Receipt Date: 20070110
  Transmission Date: 20070707
  Serious: Yes (Other)
  Sender: FDA-Public Use
  Company Number: ES-ROCHE-477961

PATIENT
  Age: 60 Year
  Sex: Female
  Weight: 60 kg

DRUGS (1)
  1. ANTALGIN [Suspect]
     Route: 048
     Dates: end: 20070108

REACTIONS (5)
  - ABDOMINAL DISCOMFORT [None]
  - ASPHYXIA [None]
  - HYPOTENSION [None]
  - SENSORY LOSS [None]
  - URTICARIA [None]
